FAERS Safety Report 10979210 (Version 1)
Quarter: 2015Q2

REPORT INFORMATION
  Report Type: Spontaneous
  Country: GB (occurrence: GB)
  Receive Date: 20150402
  Receipt Date: 20150402
  Transmission Date: 20150821
  Serious: Yes (Hospitalization)
  Sender: FDA-Public Use
  Company Number: GB-WATSON-2015-06875

PATIENT
  Sex: Female

DRUGS (2)
  1. SODIUM CHLORIDE. [Suspect]
     Active Substance: SODIUM CHLORIDE
     Indication: PRODUCT USED FOR UNKNOWN INDICATION
     Dosage: 40 ML, UNK;FIVE TIMES PER WEEK
     Route: 058
     Dates: start: 20150223
  2. DEFEROXAMINE MESYLATE (WATSON LABORATORIES) [Suspect]
     Active Substance: DEFEROXAMINE MESYLATE
     Indication: PRODUCT USED FOR UNKNOWN INDICATION
     Dosage: UNK; FIVE TIMES PER WEEK
     Route: 058
     Dates: start: 20150223

REACTIONS (4)
  - Viral infection [Unknown]
  - Oropharyngeal pain [Unknown]
  - Ear pain [Unknown]
  - Feeling abnormal [Unknown]

NARRATIVE: CASE EVENT DATE: 20150226
